FAERS Safety Report 6333276-4 (Version None)
Quarter: 2009Q3

REPORT INFORMATION
  Report Type: 
  Country: None (occurrence: None)
  Receive Date: 20090828
  Receipt Date: 20090825
  Transmission Date: 20100115
  Serious: No
  Sender: FDA-Public Use
  Company Number: US-B.I. PHARMACEUTICALS,INC./RIDGEFIELD-2009-BP-10065BP

PATIENT

DRUGS (1)
  1. AGGRENOX [Suspect]
     Route: 048

REACTIONS (1)
  - ABDOMINAL DISCOMFORT [None]
